FAERS Safety Report 7116312-7 (Version None)
Quarter: 2010Q4

REPORT INFORMATION
  Report Type: 
  Country: None (occurrence: None)
  Receive Date: 20101122
  Receipt Date: 20101115
  Transmission Date: 20110411
  Serious: Yes (Other)
  Sender: FDA-Public Use
  Company Number: A0837860A

PATIENT
  Age: 62 Year
  Sex: Female

DRUGS (1)
  1. ROSIGLITAZONE [Suspect]
     Dosage: 8MG PER DAY
     Route: 048
     Dates: start: 20051212, end: 20060516

REACTIONS (3)
  - ANAEMIA [None]
  - CARDIAC FAILURE [None]
  - CARDIOVASCULAR DISORDER [None]
